FAERS Safety Report 17328820 (Version 1)
Quarter: 2020Q1

REPORT INFORMATION
  Report Type: Spontaneous
  Country: SE (occurrence: SE)
  Receive Date: 20200127
  Receipt Date: 20200127
  Transmission Date: 20200409
  Serious: Yes (Hospitalization)
  Sender: FDA-Public Use
  Company Number: SE-MYLANLABS-2020M1008879

PATIENT
  Age: 19 Year
  Sex: Female

DRUGS (2)
  1. STESOLID [Suspect]
     Active Substance: DIAZEPAM
     Indication: PRODUCT USED FOR UNKNOWN INDICATION
     Dosage: 45 MILLIGRAM
     Route: 048
     Dates: start: 20181113, end: 20181113
  2. LERGIGAN (PROMETHAZINE HYDROCHLORIDE) [Suspect]
     Active Substance: PROMETHAZINE HYDROCHLORIDE
     Indication: PRODUCT USED FOR UNKNOWN INDICATION
     Dosage: 13 TAB LERGIGAN
     Route: 048
     Dates: start: 20181113, end: 20181113

REACTIONS (3)
  - Intentional self-injury [Unknown]
  - Anxiety [Unknown]
  - Intentional overdose [Unknown]

NARRATIVE: CASE EVENT DATE: 201811
